FAERS Safety Report 15844659 (Version 1)
Quarter: 2019Q1

REPORT INFORMATION
  Report Type: Spontaneous
  Country: IT (occurrence: IT)
  Receive Date: 20190118
  Receipt Date: 20190118
  Transmission Date: 20190417
  Serious: Yes (Hospitalization)
  Sender: FDA-Public Use
  Company Number: PHHY2019IT009926

PATIENT
  Age: 75 Year
  Sex: Female

DRUGS (1)
  1. LAMOTRIGINE. [Suspect]
     Active Substance: LAMOTRIGINE
     Indication: EPILEPSY
     Dosage: 1200 MG, ONCE/SINGLE
     Route: 048
     Dates: start: 20190106, end: 20190106

REACTIONS (6)
  - Medication error [Recovering/Resolving]
  - Dry mouth [Recovering/Resolving]
  - Abdominal pain [Recovering/Resolving]
  - Sopor [Recovering/Resolving]
  - Paraesthesia [Recovering/Resolving]
  - Asthenia [Recovering/Resolving]

NARRATIVE: CASE EVENT DATE: 20190106
